FAERS Safety Report 6011391-2 (Version None)
Quarter: 2008Q4

REPORT INFORMATION
  Report Type: 
  Country: None (occurrence: None)
  Receive Date: 20081218
  Receipt Date: 20081208
  Transmission Date: 20090506
  Serious: Yes (Other)
  Sender: FDA-Public Use
  Company Number: CA-JNJFOC-20080904802

PATIENT
  Age: 59 Year
  Sex: Male
  Weight: 99.79 kg

DRUGS (4)
  1. REMICADE [Suspect]
     Route: 042
  2. REMICADE [Suspect]
     Route: 042
  3. REMICADE [Suspect]
     Indication: CROHN'S DISEASE
     Route: 042
  4. BENADRYL [Concomitant]
     Indication: PREMEDICATION

REACTIONS (3)
  - INFUSION RELATED REACTION [None]
  - PROSTATE CANCER [None]
  - RASH PRURITIC [None]
